FAERS Safety Report 6556456-1 (Version None)
Quarter: 2010Q1

REPORT INFORMATION
  Report Type: 
  Country: None (occurrence: None)
  Receive Date: 20100128
  Receipt Date: 20100119
  Transmission Date: 20100710
  Serious: Yes (Other)
  Sender: FDA-Public Use
  Company Number: US-PFIZER INC-2010008640

PATIENT
  Sex: Female
  Weight: 53.515 kg

DRUGS (7)
  1. LIPITOR [Suspect]
     Indication: BLOOD CHOLESTEROL INCREASED
     Dosage: 20 MG, 1X/DAY
     Route: 048
     Dates: start: 20090901
  2. LIPITOR [Suspect]
     Indication: BLOOD TRIGLYCERIDES INCREASED
  3. TOPROL-XL [Concomitant]
     Dosage: UNK
     Dates: start: 19920101
  4. VITAMIN B COMPLEX CAP [Concomitant]
     Dosage: UNK
  5. VITAMIN D [Concomitant]
     Dosage: 60000 IU, UNK
  6. OMEPRAZOLE [Concomitant]
     Dosage: 20 MG, AS NEEDED
  7. SYNTHROID [Concomitant]
     Indication: THYROID DISORDER
     Dosage: UNK
     Route: 048
     Dates: start: 19920101

REACTIONS (6)
  - ABDOMINAL PAIN UPPER [None]
  - BLOOD CHOLESTEROL INCREASED [None]
  - DYSURIA [None]
  - OVARIAN CYST [None]
  - PELVIC PAIN [None]
  - VAGINAL HAEMORRHAGE [None]
